FAERS Safety Report 9619330 (Version 2)
Quarter: 2013Q4

REPORT INFORMATION
  Report Type: Spontaneous
  Country: US (occurrence: US)
  Receive Date: 20131014
  Receipt Date: 20131018
  Transmission Date: 20140711
  Serious: Yes (Death, Life-Threatening, Hospitalization)
  Sender: FDA-Public Use
  Company Number: US-009507513-1310USA005129

PATIENT
  Sex: Female

DRUGS (3)
  1. PEGINTRON [Suspect]
     Indication: HEPATITIS C
     Route: 058
  2. VICTRELIS [Suspect]
  3. REBETOL [Suspect]

REACTIONS (3)
  - Death [Fatal]
  - Fall [Unknown]
  - Syncope [Unknown]
